FAERS Safety Report 18090811 (Version 1)
Quarter: 2020Q3

REPORT INFORMATION
  Report Type: Spontaneous
  Country: MX (occurrence: MX)
  Receive Date: 20200730
  Receipt Date: 20200730
  Transmission Date: 20201103
  Serious: Yes (Other)
  Sender: FDA-Public Use
  Company Number: MX-ROCHE-2650461

PATIENT
  Sex: Female

DRUGS (1)
  1. KADCYLA [Suspect]
     Active Substance: ADO-TRASTUZUMAB EMTANSINE
     Indication: HER2 POSITIVE BREAST CANCER
     Dosage: DOSE AND FREQUENCY ARE UNKNOWN
     Route: 042
     Dates: start: 20190901

REACTIONS (6)
  - Lung disorder [Unknown]
  - Swelling [Not Recovered/Not Resolved]
  - Metastasis [Unknown]
  - Cough [Unknown]
  - Purulent discharge [Unknown]
  - Purulence [Unknown]
